FAERS Safety Report 7485458-6 (Version None)
Quarter: 2011Q2

REPORT INFORMATION
  Report Type: 
  Country: None (occurrence: None)
  Receive Date: 20110509
  Receipt Date: 20110422
  Transmission Date: 20111010
  Serious: Yes (Other)
  Sender: FDA-Public Use
  Company Number: 2011SP011931

PATIENT
  Sex: Male

DRUGS (9)
  1. TRAMADOL HCL [Concomitant]
  2. HYDROCHLOROTHIAZIDE [Concomitant]
  3. REBETOL [Suspect]
     Indication: HEPATITIS C
     Dosage: 150 MCG;QW;SC
     Route: 058
     Dates: start: 20110304
  4. LOVASTATIN [Concomitant]
  5. LISINOPRIL [Concomitant]
  6. METFORMIN HCL [Concomitant]
  7. GELIPIZIDE [Concomitant]
  8. PEG-INTRON [Suspect]
     Indication: HEPATITIS C
     Dosage: 150 MCG;QW;SC
     Route: 058
     Dates: start: 20110304
  9. ASPIRIN [Concomitant]

REACTIONS (8)
  - HEADACHE [None]
  - INSOMNIA [None]
  - INJECTION SITE ERYTHEMA [None]
  - RASH [None]
  - DIARRHOEA [None]
  - PAIN [None]
  - HAEMATOCHEZIA [None]
  - CHILLS [None]
